FAERS Safety Report 7617291-6 (Version None)
Quarter: 2011Q3

REPORT INFORMATION
  Report Type: 
  Country: None (occurrence: None)
  Receive Date: 20110718
  Receipt Date: 20110705
  Transmission Date: 20111222
  Serious: Yes (Hospitalization)
  Sender: FDA-Public Use
  Company Number: PHHO2011US11636

PATIENT
  Sex: Female
  Weight: 89 kg

DRUGS (9)
  1. BOSUTINIB [Suspect]
  2. HYDROCORTISONE [Concomitant]
  3. FORADIL [Suspect]
     Dosage: 12 UG, BID
     Dates: start: 20110401, end: 20110502
  4. ZINC [Concomitant]
  5. FERROUS SULFATE TAB [Concomitant]
  6. COLECALCIFEROL [Concomitant]
  7. ALLOPURINOL [Concomitant]
  8. GENISTEIN [Concomitant]
  9. FLUTICASONE PROPIONATE [Concomitant]

REACTIONS (3)
  - HYPERSENSITIVITY [None]
  - DYSPNOEA EXERTIONAL [None]
  - CHEST PAIN [None]
